FAERS Safety Report 21010149 (Version 2)
Quarter: 2022Q3

REPORT INFORMATION
  Report Type: Report from Study
  Country: US (occurrence: US)
  Receive Date: 20220627
  Receipt Date: 20220714
  Transmission Date: 20221027
  Serious: Yes (Other)
  Sender: FDA-Public Use
  Company Number: US-EXELIXIS-CABO-22053132

PATIENT
  Age: 62 Year
  Sex: Female

DRUGS (2)
  1. CABOMETYX [Suspect]
     Active Substance: CABOZANTINIB S-MALATE
     Indication: Hepatic cancer
     Dosage: 60 MG, QD (20 MG X 3 TABLETS)
     Route: 048
     Dates: start: 202205
  2. CABOMETYX [Suspect]
     Active Substance: CABOZANTINIB S-MALATE
     Dosage: UNK (DECREASED DOSE)
     Route: 048

REACTIONS (4)
  - Delirium [Unknown]
  - Pneumonia [Unknown]
  - Blood pressure increased [Unknown]
  - Infection [Unknown]

NARRATIVE: CASE EVENT DATE: 20220614
